FAERS Safety Report 4356394-9 (Version None)
Quarter: 2004Q2

REPORT INFORMATION
  Report Type: 
  Country: None (occurrence: None)
  Receive Date: 20040511
  Receipt Date: 20040511
  Transmission Date: 20050107
  Serious: Yes (Hospitalization)
  Sender: FDA-Public Use
  Company Number: None

PATIENT
  Age: 60 Year
  Sex: Female
  Weight: 62.5964 kg

DRUGS (2)
  1. PACLITAXEL [Suspect]
     Dosage: 280 MG Q3WK IV
     Route: 042
     Dates: start: 20040116, end: 20040430
  2. CARBOPLATIN [Suspect]
     Dosage: 665 MG Q3WK IV
     Route: 042
     Dates: start: 20040116, end: 20040530

REACTIONS (2)
  - NUCLEAR MAGNETIC RESONANCE IMAGING ABNORMAL [None]
  - PAIN IN EXTREMITY [None]
